FAERS Safety Report 8406618-3 (Version None)
Quarter: 2012Q2

REPORT INFORMATION
  Report Type: 
  Country: None (occurrence: None)
  Receive Date: 20120604
  Receipt Date: 20120523
  Transmission Date: 20120825
  Serious: Yes (Other)
  Sender: FDA-Public Use
  Company Number: CA-ELI_LILLY_AND_COMPANY-CA201205009044

PATIENT
  Age: 58 Year
  Sex: Female

DRUGS (7)
  1. PROTEINS NOS [Concomitant]
  2. TYLENOL                                 /SCH/ [Concomitant]
  3. VENLAFAXINE [Concomitant]
  4. FORTEO [Suspect]
     Indication: OSTEOPOROSIS
     Dosage: 20 UG, QD
     Route: 058
     Dates: start: 20111024
  5. VITAMIN D [Concomitant]
     Dosage: 2000 IU, UNK
  6. PANTOPRAZOLE [Concomitant]
     Dosage: 40 MG, UNK
  7. LORAZEPAM [Concomitant]
     Dosage: 1 MG, EACH EVENING

REACTIONS (2)
  - OESOPHAGEAL CARCINOMA [None]
  - MAMMOGRAM ABNORMAL [None]
